APPROVED DRUG PRODUCT: SONATA
Active Ingredient: ZALEPLON
Strength: 10MG
Dosage Form/Route: CAPSULE;ORAL
Application: N020859 | Product #002
Applicant: PFIZER INC
Approved: Aug 13, 1999 | RLD: Yes | RS: No | Type: DISCN